FAERS Safety Report 5937887-7 (Version None)
Quarter: 2008Q4

REPORT INFORMATION
  Report Type: 
  Country: None (occurrence: None)
  Receive Date: 20081031
  Receipt Date: 20081023
  Transmission Date: 20090506
  Serious: Yes (Other)
  Sender: FDA-Public Use
  Company Number: US-PFIZER INC-2008089481

PATIENT
  Sex: Female

DRUGS (2)
  1. CELEBREX [Suspect]
     Indication: ARTHRITIS
     Dates: start: 20080301
  2. ALDACTONE [Suspect]
     Indication: BLOOD PRESSURE

REACTIONS (3)
  - BREAST ENLARGEMENT [None]
  - MITRAL VALVE PROLAPSE [None]
  - PANCREATITIS [None]
